FAERS Safety Report 12917181 (Version 1)
Quarter: 2016Q4

REPORT INFORMATION
  Report Type: Spontaneous
  Country: DE (occurrence: DE)
  Receive Date: 20161107
  Receipt Date: 20161107
  Transmission Date: 20170207
  Serious: Yes (Other)
  Sender: FDA-Public Use
  Company Number: DE-TORRENT-00005432

PATIENT
  Sex: Male

DRUGS (1)
  1. VENLAFAXIN HEUMANN 75 MG HARTKAPSELN, RETARDIERT [Suspect]
     Active Substance: VENLAFAXINE HYDROCHLORIDE
     Indication: DEPRESSION

REACTIONS (2)
  - Urinary retention [Not Recovered/Not Resolved]
  - Acute kidney injury [Not Recovered/Not Resolved]
